FAERS Safety Report 25464345 (Version 4)
Quarter: 2025Q3

REPORT INFORMATION
  Report Type: Spontaneous
  Country: EU (occurrence: EU)
  Receive Date: 20250621
  Receipt Date: 20250801
  Transmission Date: 20251020
  Serious: Yes (Hospitalization, Other)
  Sender: AUROBINDO
  Company Number: EU-PFIZER INC-202500114917

PATIENT
  Age: 67 Year
  Sex: Male

DRUGS (15)
  1. LINEZOLID [Suspect]
     Active Substance: LINEZOLID
     Indication: Staphylococcal sepsis
     Route: 065
  2. LINEZOLID [Suspect]
     Active Substance: LINEZOLID
     Indication: Clostridium difficile infection
  3. LINEZOLID [Suspect]
     Active Substance: LINEZOLID
     Indication: Staphylococcal sepsis
  4. PIPERACILLIN AND TAZOBACTAM [Suspect]
     Active Substance: PIPERACILLIN SODIUM\TAZOBACTAM SODIUM
     Indication: Staphylococcal sepsis
     Route: 065
  5. PIPERACILLIN AND TAZOBACTAM [Suspect]
     Active Substance: PIPERACILLIN SODIUM\TAZOBACTAM SODIUM
     Indication: Clostridium difficile infection
  6. PIPERACILLIN AND TAZOBACTAM [Suspect]
     Active Substance: PIPERACILLIN SODIUM\TAZOBACTAM SODIUM
     Indication: Staphylococcal sepsis
  7. VANCOMYCIN [Suspect]
     Active Substance: VANCOMYCIN
     Indication: Staphylococcal sepsis
     Route: 065
  8. VANCOMYCIN [Suspect]
     Active Substance: VANCOMYCIN
     Indication: Clostridium difficile infection
  9. VANCOMYCIN [Suspect]
     Active Substance: VANCOMYCIN
     Indication: Staphylococcal sepsis
  10. LEVOFLOXACIN [Suspect]
     Active Substance: LEVOFLOXACIN
     Indication: Staphylococcal sepsis
     Route: 065
  11. LEVOFLOXACIN [Suspect]
     Active Substance: LEVOFLOXACIN
     Indication: Clostridium difficile infection
  12. LEVOFLOXACIN [Suspect]
     Active Substance: LEVOFLOXACIN
     Indication: Staphylococcal sepsis
  13. CLINDAMYCIN [Suspect]
     Active Substance: CLINDAMYCIN
     Indication: Clostridium difficile infection
     Route: 065
  14. CLINDAMYCIN [Suspect]
     Active Substance: CLINDAMYCIN
     Indication: Staphylococcal sepsis
  15. FIDAXOMICIN [Suspect]
     Active Substance: FIDAXOMICIN
     Indication: Staphylococcal sepsis
     Route: 065

REACTIONS (7)
  - Clostridium difficile colitis [Recovering/Resolving]
  - Megacolon [Recovering/Resolving]
  - Pancreatic failure [Recovering/Resolving]
  - Pseudomembranous colitis [Recovering/Resolving]
  - Diarrhoea [Recovering/Resolving]
  - Intestinal atony [Recovering/Resolving]
  - Drug ineffective [Unknown]
